FAERS Safety Report 17165847 (Version 1)
Quarter: 2019Q4

REPORT INFORMATION
  Report Type: Spontaneous
  Country: SE (occurrence: SE)
  Receive Date: 20191217
  Receipt Date: 20191217
  Transmission Date: 20200122
  Serious: Yes (Hospitalization, Other)
  Sender: FDA-Public Use
  Company Number: SE-SA-2019SA343656

PATIENT
  Sex: Female

DRUGS (6)
  1. CHLORPROTHIXENE [Suspect]
     Active Substance: CHLORPROTHIXENE
     Dosage: 150 MG, UNK
     Route: 048
     Dates: start: 20181127, end: 20181127
  2. QUETIAPINE FUMARATE. [Suspect]
     Active Substance: QUETIAPINE FUMARATE
     Dosage: 150 MG, UNK
     Route: 048
     Dates: start: 20181127, end: 20181127
  3. HEMINEVRIN [CLOMETHIAZOLE EDISILATE] [Suspect]
     Active Substance: CLOMETHIAZOLE EDISYLATE
     Dosage: 1800 MG, UNK
     Route: 048
     Dates: start: 20181127, end: 20181127
  4. ZOLPIDEM TARTRATE. [Suspect]
     Active Substance: ZOLPIDEM TARTRATE
     Dosage: 30 MG, UNK
     Route: 051
     Dates: start: 20181127, end: 20181127
  5. PROPAVAN [Suspect]
     Active Substance: PROPIOMAZINE
     Dosage: 150 MG, UNK
     Route: 048
     Dates: start: 20181127, end: 20181127
  6. AMITRIPTYLINE HYDROCHLORIDE. [Suspect]
     Active Substance: AMITRIPTYLINE HYDROCHLORIDE
     Dosage: 150 MG, UNK
     Route: 048
     Dates: start: 20181127, end: 20181127

REACTIONS (3)
  - Intentional self-injury [Unknown]
  - Tachycardia [Unknown]
  - Intentional overdose [Unknown]

NARRATIVE: CASE EVENT DATE: 20181127
